FAERS Safety Report 5029834-X (Version None)
Quarter: 2006Q2

REPORT INFORMATION
  Report Type: 
  Country: None (occurrence: None)
  Receive Date: 20060614
  Receipt Date: 20060531
  Transmission Date: 20061013
  Serious: Yes (Hospitalization)
  Sender: FDA-Public Use
  Company Number: 2006RR-02502

PATIENT
  Age: 19 Year
  Sex: Male

DRUGS (1)
  1. DOXYCYCLINE [Suspect]
     Indication: ACNE
     Dosage: 100 MG, QD, ORAL
     Route: 048

REACTIONS (8)
  - CARDIAC PROCEDURE COMPLICATION [None]
  - HUNGER [None]
  - HYPERHIDROSIS [None]
  - HYPERPHAGIA [None]
  - HYPOGLYCAEMIA [None]
  - LETHARGY [None]
  - TREMOR [None]
  - WEIGHT INCREASED [None]
